FAERS Safety Report 13013507 (Version 1)
Quarter: 2016Q4

REPORT INFORMATION
  Report Type: Spontaneous
  Country: SE (occurrence: SE)
  Receive Date: 20161209
  Receipt Date: 20161209
  Transmission Date: 20170207
  Serious: Yes (Hospitalization)
  Sender: FDA-Public Use
  Company Number: SE-TEVA-716039ACC

PATIENT
  Age: 47 Year
  Sex: Male

DRUGS (2)
  1. ALVEDON 665 MG TABLETT MED MODIFIERAD FRIS?TTNING [Suspect]
     Active Substance: ACETAMINOPHEN
     Dosage: 100 TABL
     Route: 048
     Dates: start: 20151009, end: 20151009
  2. STESOLID 10 MG TABLETT [Suspect]
     Active Substance: DIAZEPAM
     Dosage: 11 TABL
     Route: 048
     Dates: start: 20161009, end: 20161009

REACTIONS (12)
  - Alanine aminotransferase increased [Unknown]
  - Aspartate aminotransferase increased [Unknown]
  - Overdose [Recovered/Resolved]
  - Analgesic drug level increased [Recovered/Resolved]
  - Blood creatinine increased [Recovered/Resolved]
  - Suicide attempt [Recovered/Resolved]
  - Urinary retention [Unknown]
  - Nausea [Unknown]
  - International normalised ratio increased [Unknown]
  - Platelet count decreased [Unknown]
  - Abdominal pain [Unknown]
  - Toxicity to various agents [Recovered/Resolved]

NARRATIVE: CASE EVENT DATE: 20151009
